FAERS Safety Report 8512948-7 (Version None)
Quarter: 2012Q3

REPORT INFORMATION
  Report Type: 
  Country: None (occurrence: None)
  Receive Date: 20120705
  Receipt Date: 20120620
  Transmission Date: 20120928
  Serious: Yes (Other)
  Sender: FDA-Public Use
  Company Number: 2012P1045479

PATIENT
  Age: 78 Year
  Sex: Male

DRUGS (3)
  1. DICLOFENAC SODIUM [Suspect]
  2. FLUINDIONE (NO PREF. NAME) [Suspect]
  3. DIGOXIN [Suspect]

REACTIONS (1)
  - DRUG RASH WITH EOSINOPHILIA AND SYSTEMIC SYMPTOMS [None]
